FAERS Safety Report 10150585 (Version 2)
Quarter: 2014Q2

REPORT INFORMATION
  Report Type: Spontaneous
  Country: US (occurrence: IL)
  Receive Date: 20140502
  Receipt Date: 20140502
  Transmission Date: 20141212
  Serious: Yes (Other)
  Sender: FDA-Public Use
  Company Number: US-BAYER-2011-074010

PATIENT
  Age: 46 Year
  Sex: Female

DRUGS (1)
  1. BETAFERON [Suspect]
     Dosage: UNK
     Route: 058
     Dates: start: 2003, end: 200803

REACTIONS (3)
  - Multiple sclerosis relapse [None]
  - Deep vein thrombosis [None]
  - General physical health deterioration [None]
